FAERS Safety Report 8964398 (Version 2)
Quarter: 2013Q1

REPORT INFORMATION
  Report Type: Report from Study
  Country: DE (occurrence: DE)
  Receive Date: 20121214
  Receipt Date: 20130109
  Transmission Date: 20140127
  Serious: Yes (Hospitalization)
  Sender: FDA-Public Use
  Company Number: DE-JNJFOC-20121205680

PATIENT
  Age: 72 Year
  Sex: Male
  Weight: 85 kg

DRUGS (10)
  1. SIMPONI [Suspect]
     Indication: PRODUCT USED FOR UNKNOWN INDICATION
     Route: 058
     Dates: start: 20111023
  2. SIMPONI [Suspect]
     Indication: PRODUCT USED FOR UNKNOWN INDICATION
     Route: 058
     Dates: start: 20110823
  3. ARAVA [Concomitant]
     Dates: start: 2008
  4. PREDNISOLONE [Concomitant]
  5. LODOTRA [Concomitant]
     Dates: end: 201210
  6. OMEPRAZOLE [Concomitant]
  7. CODIOVAN [Concomitant]
  8. TORSEMIDE [Concomitant]
  9. AMLODIPINE [Concomitant]
  10. ACETYLSALICYLIC ACID [Concomitant]

REACTIONS (2)
  - Erysipelas [Recovered/Resolved]
  - Drug ineffective [Unknown]
